FAERS Safety Report 14846065 (Version 1)
Quarter: 2018Q2

REPORT INFORMATION
  Report Type: Spontaneous
  Country: FR (occurrence: FR)
  Receive Date: 20180504
  Receipt Date: 20180504
  Transmission Date: 20180711
  Serious: Yes (Other)
  Sender: FDA-Public Use
  Company Number: FR-MERCK KGAA-2047189

PATIENT
  Age: 33 Year
  Sex: Female

DRUGS (1)
  1. NOVOTHYROX [Suspect]
     Active Substance: LEVOTHYROXINE SODIUM
     Indication: PRODUCT USED FOR UNKNOWN INDICATION
     Dates: start: 201704

REACTIONS (19)
  - Maternal exposure during pregnancy [Recovered/Resolved]
  - Mood swings [None]
  - Libido decreased [None]
  - Loss of personal independence in daily activities [None]
  - Glycosylated haemoglobin increased [None]
  - Alopecia [None]
  - Anembryonic gestation [Recovered/Resolved]
  - Asthenia [None]
  - Neutrophil count decreased [None]
  - Depressed mood [None]
  - Weight increased [None]
  - Hyperglycaemia [None]
  - Disturbance in attention [None]
  - Impaired work ability [None]
  - Blood thyroid stimulating hormone decreased [None]
  - Hypoglycaemia [None]
  - Decreased activity [None]
  - White blood cell count decreased [None]
  - Hypersomnia [None]

NARRATIVE: CASE EVENT DATE: 2017
